FAERS Safety Report 11730149 (Version 2)
Quarter: 2016Q4

REPORT INFORMATION
  Report Type: Spontaneous
  Country: US (occurrence: US)
  Receive Date: 20151112
  Receipt Date: 20161019
  Transmission Date: 20170206
  Serious: No
  Sender: FDA-Public Use
  Company Number: GXBR2015US002169

PATIENT
  Sex: Female

DRUGS (1)
  1. ONDANSETRON [Suspect]
     Active Substance: ONDANSETRON
     Indication: HYPEREMESIS GRAVIDARUM
     Dosage: UNK DF, UNK
     Route: 048

REACTIONS (1)
  - Maternal exposure during pregnancy [Unknown]
